FAERS Safety Report 9916141 (Version 1)
Quarter: 2014Q1

REPORT INFORMATION
  Report Type: Spontaneous
  Country: US (occurrence: None)
  Receive Date: 20140219
  Receipt Date: 20140219
  Transmission Date: 20141002
  Serious: Yes (Other)
  Sender: FDA-Public Use
  Company Number: CC13-1243

PATIENT
  Age: 77 Year
  Sex: Male

DRUGS (1)
  1. IMIQUIMOD [Suspect]
     Indication: SKIN CANCER
     Dosage: UNKNOWN DOSE, QD, TOPICALLY
     Route: 061
     Dates: start: 2013, end: 2013

REACTIONS (5)
  - Ear swelling [None]
  - Application site vesicles [None]
  - Application site haemorrhage [None]
  - Application site pain [None]
  - Influenza [None]
